FAERS Safety Report 6607028-1 (Version None)
Quarter: 2010Q1

REPORT INFORMATION
  Report Type: 
  Country: None (occurrence: None)
  Receive Date: 20100226
  Receipt Date: 20100216
  Transmission Date: 20100710
  Serious: Yes (Life-Threatening, Hospitalization)
  Sender: FDA-Public Use
  Company Number: JP-AMGEN-US380732

PATIENT
  Sex: Male
  Weight: 88 kg

DRUGS (12)
  1. ENBREL [Suspect]
     Indication: RHEUMATOID ARTHRITIS
     Dosage: LYOPHILIZED, 25 MG 2X/WK
     Route: 058
     Dates: start: 20060119, end: 20091101
  2. OLMETEC [Concomitant]
     Indication: HYPERTENSION
     Route: 048
  3. MELBIN [Concomitant]
     Indication: DIABETES MELLITUS
     Route: 048
  4. AMARYL [Concomitant]
     Indication: DIABETES MELLITUS
     Route: 048
  5. PENICILLAMINE [Concomitant]
     Indication: RHEUMATOID ARTHRITIS
     Route: 048
     Dates: start: 20040101
  6. ALTAT [Concomitant]
     Indication: GASTRITIS
     Route: 048
  7. MAGNESIUM OXIDE [Concomitant]
     Indication: CONSTIPATION
     Dosage: UNKNOWN
     Route: 048
  8. PREDONINE [Concomitant]
     Indication: RHEUMATOID ARTHRITIS
     Route: 048
     Dates: start: 20040101
  9. INTEBAN [Concomitant]
     Indication: PAIN
     Route: 048
  10. INTEBAN [Concomitant]
     Indication: INFLAMMATION
  11. AMLODIPINE [Concomitant]
     Indication: HYPERTENSION
     Route: 048
  12. ALLORINE [Concomitant]
     Indication: HYPERURICAEMIA
     Route: 048

REACTIONS (2)
  - HIP ARTHROPLASTY [None]
  - NON-HODGKIN'S LYMPHOMA [None]
